FAERS Safety Report 5954838-X (Version None)
Quarter: 2008Q4

REPORT INFORMATION
  Report Type: 
  Country: None (occurrence: None)
  Receive Date: 20081113
  Receipt Date: 20081113
  Transmission Date: 20090506
  Serious: Yes (Life-Threatening)
  Sender: FDA-Public Use
  Company Number: None

PATIENT
  Age: 78 Year
  Sex: Male
  Weight: 95.5 kg

DRUGS (13)
  1. ATRA 10 MG [Suspect]
     Indication: ACUTE MYELOID LEUKAEMIA
     Dosage: 50 MG BID PO
     Route: 048
     Dates: start: 20080327, end: 20080408
  2. IDARUBICIN HCL [Concomitant]
  3. BENZONATATE [Concomitant]
  4. ALLOPURINOL [Concomitant]
  5. METOPROLOL TARTRATE [Concomitant]
  6. LOVASTATIN [Concomitant]
  7. DEXAMETHASONE [Concomitant]
  8. SOTALOL HCL [Concomitant]
  9. IRBESARTAN [Concomitant]
  10. OMEPRAZOLE [Concomitant]
  11. BICLUTAMIDE [Concomitant]
  12. LEVOTHYROXINE SODIUM [Concomitant]
  13. IRON [Concomitant]

REACTIONS (7)
  - HAEMORRHAGE [None]
  - HYPOTENSION [None]
  - LUNG INFILTRATION [None]
  - RENAL FAILURE [None]
  - RESPIRATORY FAILURE [None]
  - RETINOIC ACID SYNDROME [None]
  - TROPONIN INCREASED [None]
